FAERS Safety Report 16919702 (Version 1)
Quarter: 2019Q4

REPORT INFORMATION
  Report Type: Spontaneous
  Country: US (occurrence: US)
  Receive Date: 20190822
  Receipt Date: 20190822
  Transmission Date: 20200122
  Serious: Yes (Other)
  Sender: FDA-Public Use
  Company Number: None

PATIENT
  Age: 58 Year
  Sex: Female

DRUGS (3)
  1. DALFAMPRIDINE 10 MG [Suspect]
     Active Substance: DALFAMPRIDINE
     Indication: MULTIPLE SCLEROSIS
     Route: 048
     Dates: start: 20181017
  2. BACLOFEN. [Concomitant]
     Active Substance: BACLOFEN
  3. CALCIFEROL [Concomitant]

REACTIONS (2)
  - Fall [None]
  - Hip fracture [None]
